FAERS Safety Report 23916741 (Version 2)
Quarter: 2024Q2

REPORT INFORMATION
  Report Type: Spontaneous
  Country: AR (occurrence: AR)
  Receive Date: 20240529
  Receipt Date: 20240604
  Transmission Date: 20240716
  Serious: Yes (Death, Hospitalization, Other)
  Sender: FDA-Public Use
  Company Number: AR-KYOWAKIRIN-2024KK012821

PATIENT

DRUGS (1)
  1. CRYSVITA [Suspect]
     Active Substance: BUROSUMAB-TWZA
     Indication: Hypophosphataemic osteomalacia
     Dosage: 20 MILLIGRAM, MONTHLY
     Route: 058
     Dates: start: 20200414, end: 20240525

REACTIONS (9)
  - Cardiac arrest [Fatal]
  - Status epilepticus [Fatal]
  - Loss of consciousness [Not Recovered/Not Resolved]
  - Seizure [Not Recovered/Not Resolved]
  - Device related infection [Not Recovered/Not Resolved]
  - Agitation [Not Recovered/Not Resolved]
  - Sepsis [Unknown]
  - Off label use [Recovered/Resolved]
  - Prescribed underdose [Recovered/Resolved]

NARRATIVE: CASE EVENT DATE: 20200414
